FAERS Safety Report 5868670-9 (Version None)
Quarter: 2008Q3

REPORT INFORMATION
  Report Type: 
  Country: None (occurrence: None)
  Receive Date: 20080903
  Receipt Date: 20080826
  Transmission Date: 20090109
  Serious: Yes (Hospitalization)
  Sender: FDA-Public Use
  Company Number: PHHY2008FR19431

PATIENT
  Sex: Female

DRUGS (8)
  1. COTAREG [Suspect]
     Indication: HYPERTENSION
     Dosage: 80/12.5 MG/DAY
     Route: 048
     Dates: end: 20080507
  2. TAREG [Suspect]
     Dosage: 160 MG, QD
     Dates: start: 20080508, end: 20080522
  3. TAREG [Suspect]
     Dosage: 80 MG/DAY
  4. ZOLOFT [Suspect]
     Indication: DEPRESSION
     Dosage: 50 MG, QD
     Dates: start: 20080515, end: 20080522
  5. AMIODARONE [Concomitant]
  6. LEXOMIL [Concomitant]
  7. ASPIRIN [Concomitant]
  8. TRIMETAZIDINE [Concomitant]

REACTIONS (4)
  - ASTHENIA [None]
  - DEPRESSION [None]
  - FALL [None]
  - HYPONATRAEMIA [None]
